FAERS Safety Report 7882449-8 (Version None)
Quarter: 2011Q4

REPORT INFORMATION
  Report Type: 
  Country: None (occurrence: None)
  Receive Date: 20111101
  Receipt Date: 20110615
  Transmission Date: 20120403
  Serious: No
  Sender: FDA-Public Use
  Company Number: US-AMGEN-USASP2011030659

PATIENT
  Age: 64 Year
  Sex: Female
  Weight: 84.354 kg

DRUGS (7)
  1. METHOTREXATE [Concomitant]
     Dosage: 2.5 MG, UNK
  2. SIMVASTATIN [Concomitant]
     Dosage: 20 MG, UNK
  3. ENBREL [Suspect]
     Indication: PRODUCT USED FOR UNKNOWN INDICATION
     Dosage: 50 MG, QWK
     Route: 058
  4. AVALIDE [Concomitant]
  5. CALCIUM [Concomitant]
  6. NABUMETONE [Concomitant]
     Dosage: 750 MG, UNK
  7. FOLIC ACID [Concomitant]
     Dosage: 1 MG, UNK

REACTIONS (2)
  - JOINT SWELLING [None]
  - FURUNCLE [None]
